FAERS Safety Report 11892668 (Version 1)
Quarter: 2016Q1

REPORT INFORMATION
  Report Type: Spontaneous
  Country: NO (occurrence: NO)
  Receive Date: 20160106
  Receipt Date: 20160106
  Transmission Date: 20160526
  Serious: Yes (Hospitalization, Other)
  Sender: FDA-Public Use
  Company Number: NO-GLAXOSMITHKLINE-NO2016000064

PATIENT
  Age: 26 Year
  Sex: Female

DRUGS (6)
  1. WELLBUTRIN [Suspect]
     Active Substance: BUPROPION HYDROCHLORIDE
     Indication: DEPRESSION
     Route: 048
     Dates: start: 20151013, end: 20151106
  2. ZOPICLONE [Concomitant]
     Active Substance: ZOPICLONE
     Indication: INSOMNIA
     Dosage: 7.5 MG, UNK
     Route: 048
     Dates: start: 20151014, end: 20151106
  3. SOBRIL [Concomitant]
     Active Substance: OXAZEPAM
     Indication: INSOMNIA
     Dosage: 15 MG, UNK
     Route: 048
     Dates: start: 20151019, end: 20151106
  4. LAMICTAL [Suspect]
     Active Substance: LAMOTRIGINE
     Indication: DEPRESSION
     Dosage: INITIAL DOSE 25 MG DAILY INCREASED TO 50 MG DAILY
     Route: 048
     Dates: start: 20151009, end: 20151106
  5. PARACET [Concomitant]
     Active Substance: ACETAMINOPHEN
     Route: 048
  6. BEROCCA [Concomitant]
     Active Substance: VITAMINS
     Indication: VITAMIN B12 DEFICIENCY
     Dosage: 1 DF, UNK
     Route: 048
     Dates: start: 20151017, end: 20151106

REACTIONS (6)
  - Dizziness [Recovered/Resolved]
  - Musculoskeletal stiffness [Recovered/Resolved]
  - Nausea [Recovered/Resolved]
  - Headache [Recovered/Resolved]
  - Meningitis aseptic [Recovered/Resolved]
  - Photophobia [Recovered/Resolved]

NARRATIVE: CASE EVENT DATE: 20151105
